FAERS Safety Report 8293785-8 (Version None)
Quarter: 2012Q2

REPORT INFORMATION
  Report Type: 
  Country: None (occurrence: None)
  Receive Date: 20120418
  Receipt Date: 20120409
  Transmission Date: 20120825
  Serious: Yes (Hospitalization, Other)
  Sender: FDA-Public Use
  Company Number: US-BAYER-200926474NA

PATIENT
  Age: 41 Year
  Sex: Female
  Weight: 144 kg

DRUGS (7)
  1. LISINOPRIL [Concomitant]
     Dosage: 20 MG, QD
  2. LASIX [Concomitant]
     Dosage: 20 MG, QD
  3. FLUTICASONE FUROATE [Concomitant]
     Dosage: 150 ?G (DAILY DOSE), , NASAL
     Route: 045
     Dates: start: 20061018, end: 20070225
  4. ZYRTEC-D 12 HOUR [Concomitant]
     Indication: MULTIPLE ALLERGIES
     Dosage: 5MG/120MG
     Route: 048
     Dates: start: 20060628, end: 20070119
  5. YASMIN [Suspect]
     Indication: CONTRACEPTION
     Route: 048
     Dates: start: 20061201, end: 20070507
  6. COLCHICINE [Concomitant]
     Dosage: 0.6 MG, QD
  7. CELEBREX [Concomitant]
     Dosage: 200 MG, BID

REACTIONS (7)
  - PAIN IN EXTREMITY [None]
  - OEDEMA PERIPHERAL [None]
  - FATIGUE [None]
  - DEEP VEIN THROMBOSIS [None]
  - DYSPNOEA [None]
  - PULMONARY EMBOLISM [None]
  - PAIN [None]
